FAERS Safety Report 11227421 (Version 1)
Quarter: 2015Q2

REPORT INFORMATION
  Report Type: Report from Study
  Country: CA (occurrence: CA)
  Receive Date: 20150630
  Receipt Date: 20150630
  Transmission Date: 20150821
  Serious: Yes (Death, Hospitalization)
  Sender: FDA-Public Use
  Company Number: PHHY2014CA099760

PATIENT
  Age: 59 Year
  Sex: Male

DRUGS (1)
  1. ZOMETA [Suspect]
     Active Substance: ZOLEDRONIC ACID
     Indication: PROSTATE CANCER
     Dosage: 3.5 MG, EVERY 4 WEEKS
     Route: 042
     Dates: start: 20140415, end: 20150522

REACTIONS (5)
  - Blood creatinine increased [Unknown]
  - Prostate cancer [Unknown]
  - Malignant neoplasm progression [Unknown]
  - Death [Fatal]
  - Blood pressure systolic increased [Unknown]

NARRATIVE: CASE EVENT DATE: 20140807
